FAERS Safety Report 4692335-2 (Version None)
Quarter: 2005Q2

REPORT INFORMATION
  Report Type: 
  Country: None (occurrence: None)
  Receive Date: 20050616
  Receipt Date: 20050607
  Transmission Date: 20051028
  Serious: Yes (Death)
  Sender: FDA-Public Use
  Company Number: 200511843GDS

PATIENT
  Age: 50 Year
  Sex: Male

DRUGS (4)
  1. CARDIOASPIRIN (ACETYLSALICYLIC ACID) [Suspect]
     Dosage: 100 MG, QD, ORAL
     Route: 048
  2. ADALAT [Concomitant]
  3. VASDALAT [Concomitant]
  4. ULSIKUR [Concomitant]

REACTIONS (1)
  - HAEMATEMESIS [None]
